FAERS Safety Report 14246475 (Version 3)
Quarter: 2019Q2

REPORT INFORMATION
  Report Type: Report from Study
  Country: FR (occurrence: FR)
  Receive Date: 20171204
  Receipt Date: 20190427
  Transmission Date: 20190711
  Serious: Yes (Other)
  Sender: FDA-Public Use
  Company Number: FR-ROCHE-2033509

PATIENT

DRUGS (1)
  1. RITUXIMAB. [Suspect]
     Active Substance: RITUXIMAB
     Indication: RELAPSING-REMITTING MULTIPLE SCLEROSIS
     Route: 042

REACTIONS (6)
  - Neutropenia [Unknown]
  - Pyelonephritis [Unknown]
  - Infusion related reaction [Unknown]
  - Off label use [Unknown]
  - Intentional product use issue [Unknown]
  - Infection [Unknown]
